FAERS Safety Report 9715652 (Version 1)
Quarter: 2013Q4

REPORT INFORMATION
  Report Type: Report from Study
  Country: US (occurrence: US)
  Receive Date: 20131127
  Receipt Date: 20131127
  Transmission Date: 20140711
  Serious: Yes (Death)
  Sender: FDA-Public Use
  Company Number: US-ROCHE-1310375

PATIENT
  Age: 86 Year
  Sex: Male

DRUGS (3)
  1. LUCENTIS [Suspect]
     Indication: AGE-RELATED MACULAR DEGENERATION
     Dosage: OS
     Route: 050
     Dates: start: 2009
  2. LUCENTIS [Suspect]
     Route: 050
     Dates: start: 2009
  3. XELODA [Suspect]
     Indication: OESOPHAGEAL CARCINOMA
     Dosage: 150MG  OF TABS PER DOSE 8; 150 MG  TIMES PER DAY
     Route: 048

REACTIONS (2)
  - Death [Fatal]
  - Visual acuity reduced [Unknown]
